FAERS Safety Report 12087997 (Version 1)
Quarter: 2016Q1

REPORT INFORMATION
  Report Type: Spontaneous
  Country: US (occurrence: US)
  Receive Date: 20160217
  Receipt Date: 20160217
  Transmission Date: 20160526
  Serious: No
  Sender: FDA-Public Use
  Company Number: US-ALLERGAN-1522812US

PATIENT
  Sex: Female

DRUGS (2)
  1. KYBELLA [Suspect]
     Active Substance: DEOXYCHOLIC ACID
     Dosage: UNK, SINGLE
     Route: 058
  2. KYBELLA [Suspect]
     Active Substance: DEOXYCHOLIC ACID
     Indication: FAT TISSUE INCREASED
     Dosage: UNK, SINGLE
     Route: 058

REACTIONS (6)
  - Nerve injury [Not Recovered/Not Resolved]
  - Hypoaesthesia [Unknown]
  - Contusion [Not Recovered/Not Resolved]
  - Facial paresis [Recovering/Resolving]
  - Blood blister [Unknown]
  - Facial pain [Unknown]
